FAERS Safety Report 16880630 (Version 1)
Quarter: 2019Q4

REPORT INFORMATION
  Report Type: Spontaneous
  Country: US (occurrence: US)
  Receive Date: 20190807
  Receipt Date: 20190807
  Transmission Date: 20200122
  Serious: No
  Sender: FDA-Public Use
  Company Number: None

PATIENT

DRUGS (2)
  1. FOSPHENYTOIN  FOSPHENYTOIN SODIUM [Suspect]
     Active Substance: FOSPHENYTOIN SODIUM
     Dosage: ?          OTHER FREQUENCY:SINGLE USE VIAL;OTHER ROUTE:IM OR IV USE?
  2. FAMOTIDINE. [Suspect]
     Active Substance: FAMOTIDINE

REACTIONS (3)
  - Product dispensing error [None]
  - Product label confusion [None]
  - Product name confusion [None]
